FAERS Safety Report 4849724-2 (Version None)
Quarter: 2005Q4

REPORT INFORMATION
  Report Type: 
  Country: None (occurrence: None)
  Receive Date: 20051115
  Receipt Date: 20050909
  Transmission Date: 20060501
  Serious: No
  Sender: FDA-Public Use
  Company Number: S05-USA-04266-01

PATIENT
  Age: 45 Year
  Sex: Female

DRUGS (9)
  1. NAMENDA [Suspect]
     Indication: TRAUMATIC BRAIN INJURY
     Dosage: 5 MG QD PO
     Route: 048
     Dates: start: 20050501, end: 20050101
  2. NAMENDA [Suspect]
     Indication: TRAUMATIC BRAIN INJURY
     Dosage: 5 MG BID PO
     Route: 048
     Dates: start: 20050101, end: 20050101
  3. NAMENDA [Suspect]
     Indication: TRAUMATIC BRAIN INJURY
     Dosage: 15 MG QD PO
     Route: 048
     Dates: start: 20050101, end: 20050101
  4. NAMENDA [Suspect]
     Indication: TRAUMATIC BRAIN INJURY
     Dosage: 10 MG BID PO
     Route: 048
     Dates: start: 20050101, end: 20050820
  5. NAMENDA [Suspect]
     Indication: TRAUMATIC BRAIN INJURY
     Dosage: 5 MG QD PO
     Route: 048
     Dates: start: 20050908
  6. RESTORIL [Concomitant]
  7. NEURONTIN [Concomitant]
  8. PREVACID [Concomitant]
  9. VANCOMYCIN [Concomitant]

REACTIONS (1)
  - NAUSEA [None]
